FAERS Safety Report 12223535 (Version 3)
Quarter: 2016Q2

REPORT INFORMATION
  Report Type: Spontaneous
  Country: JP (occurrence: JP)
  Receive Date: 20160330
  Receipt Date: 20160421
  Transmission Date: 20160815
  Serious: Yes (Other)
  Sender: FDA-Public Use
  Company Number: JP-BAYER-2016-057961

PATIENT
  Sex: Male

DRUGS (4)
  1. XARELTO [Suspect]
     Active Substance: RIVAROXABAN
     Indication: CEREBROVASCULAR ACCIDENT PROPHYLAXIS
     Dosage: DAILY DOSE 10 MG
     Route: 048
  2. XARELTO [Suspect]
     Active Substance: RIVAROXABAN
     Indication: CEREBROVASCULAR ACCIDENT PROPHYLAXIS
     Dosage: DAILY DOSE 15 MG
     Route: 048
     Dates: start: 201511
  3. TOCOPHEROL ACETATE [Concomitant]
     Active Substance: .ALPHA.-TOCOPHEROL ACETATE
     Route: 048
  4. BAYASPIRIN [Suspect]
     Active Substance: ASPIRIN
     Route: 048

REACTIONS (10)
  - Pharyngeal haemorrhage [None]
  - Genital pain [None]
  - Headache [None]
  - Epistaxis [None]
  - Mental impairment [None]
  - Mouth haemorrhage [None]
  - Blood pressure fluctuation [None]
  - Bundle branch block right [None]
  - Dizziness [None]
  - Dysphonia [None]

NARRATIVE: CASE EVENT DATE: 2016
